FAERS Safety Report 21758506 (Version 1)
Quarter: 2022Q4

REPORT INFORMATION
  Report Type: Spontaneous
  Country: US (occurrence: None)
  Receive Date: 20221221
  Receipt Date: 20221221
  Transmission Date: 20230112
  Serious: No
  Sender: FDA-Public Use
  Company Number: US-ROCHE-3106554

PATIENT
  Age: 54 Year
  Sex: Male
  Weight: 90.800 kg

DRUGS (3)
  1. GAZYVA [Suspect]
     Active Substance: OBINUTUZUMAB
     Indication: Chronic lymphocytic leukaemia
     Dosage: NO
     Route: 042
     Dates: start: 20220503, end: 20220503
  2. GAZYVA [Suspect]
     Active Substance: OBINUTUZUMAB
     Dosage: NO
     Route: 042
     Dates: start: 20220504, end: 20220504
  3. VENCLEXTA [Suspect]
     Active Substance: VENETOCLAX
     Indication: Chronic lymphocytic leukaemia
     Route: 065

REACTIONS (3)
  - White blood cell count increased [Unknown]
  - Full blood count abnormal [Unknown]
  - Neutrophil count decreased [Unknown]
